FAERS Safety Report 20153443 (Version 3)
Quarter: 2021Q4

REPORT INFORMATION
  Report Type: Spontaneous
  Country: US (occurrence: US)
  Receive Date: 20211206
  Receipt Date: 20211222
  Transmission Date: 20220303
  Serious: Yes (Hospitalization, Other)
  Sender: FDA-Public Use
  Company Number: US-009507513-2112USA001258

PATIENT
  Age: 57 Year
  Sex: Male
  Weight: 80.6 kg

DRUGS (14)
  1. KEYTRUDA [Suspect]
     Active Substance: PEMBROLIZUMAB
     Indication: Bladder cancer
     Dosage: 200 MILLIGRAM, Q3W
     Dates: start: 20180328, end: 20210317
  2. FERAHEME [Suspect]
     Active Substance: FERUMOXYTOL NON-STOICHIOMETRIC MAGNETITE
     Route: 042
  3. METFORMIN [Concomitant]
     Active Substance: METFORMIN HYDROCHLORIDE
     Dosage: 1 TABLET (500MG TOTAL) BY MOUTH 2 TIMES DAILY WITH MEALS
     Route: 048
  4. LEVOTHYROXINE [Concomitant]
     Active Substance: LEVOTHYROXINE
     Dosage: 1 TABLET (100 MCG TOTAL) DAILY
     Route: 048
  5. RIVAROXABAN [Concomitant]
     Active Substance: RIVAROXABAN
     Dosage: 1 TABLET (2.5 MG TOTAL) 2 TIMES DAILY WITH MEALS
     Route: 048
  6. GABAPENTIN [Concomitant]
     Active Substance: GABAPENTIN
     Dosage: 1 CAPSULE (300 MG TOTAL) NIGHTLY
     Route: 048
  7. INSULIN LISPRO [Concomitant]
     Active Substance: INSULIN LISPRO
     Dosage: 10 UNITS BEFORE SUPPER
  8. TRESIBA [Concomitant]
     Active Substance: INSULIN DEGLUDEC
     Dosage: 50 UNITS INTO THE SKIN, DAILY
     Route: 023
  9. MEGESTROL ACETATE [Concomitant]
     Active Substance: MEGESTROL ACETATE
     Dosage: 10 MILLILITER (400 MG TOTAL), DAILY
     Route: 048
  10. VITAMINS [Concomitant]
     Active Substance: VITAMINS
     Dosage: 1 TABLED, DAILY
     Route: 048
  11. HYDROCORTISONE [Concomitant]
     Active Substance: HYDROCORTISONE
     Dosage: 1 TUBE, 3 TIMES DAILY
     Route: 061
  12. ACETAMINOPHEN\HYDROCODONE [Concomitant]
     Active Substance: ACETAMINOPHEN\HYDROCODONE
     Indication: Pain
     Dosage: 1 TABLET, EVERY 4 HOURS AS NEEDED
     Route: 048
  13. ACETAMINOPHEN\HYDROCODONE [Concomitant]
     Active Substance: ACETAMINOPHEN\HYDROCODONE
     Dosage: 1 TABLET, EVERY 6 HOURS AS NEEDED
     Route: 048
  14. PREDNISONE [Concomitant]
     Active Substance: PREDNISONE
     Dosage: 1 TABLET (2.5 MG TOTAL) DAILY
     Route: 048

REACTIONS (35)
  - Clostridium difficile colitis [Unknown]
  - Diabetes mellitus [Unknown]
  - Bile duct stenosis [Unknown]
  - Cholangitis acute [Unknown]
  - Arteriosclerosis coronary artery [Unknown]
  - Pancreatic phlegmon [Unknown]
  - Neuropathy peripheral [Unknown]
  - Malignant neoplasm progression [Recovered/Resolved]
  - Autoimmune pancreatitis [Recovering/Resolving]
  - Infected dermal cyst [Unknown]
  - Hypotension [Recovering/Resolving]
  - Dehydration [Recovering/Resolving]
  - Diarrhoea [Recovering/Resolving]
  - Illness [Unknown]
  - Blood iron decreased [Unknown]
  - Serum ferritin increased [Unknown]
  - Therapeutic product effect variable [Unknown]
  - Hilar lymphadenopathy [Unknown]
  - Staphylococcal infection [Unknown]
  - Lymphadenopathy mediastinal [Unknown]
  - Pseudocyst [Unknown]
  - Abdominal hernia [Unknown]
  - Renal procedural complication [Unknown]
  - Malaise [Recovered/Resolved]
  - Haemoglobin decreased [Recovered/Resolved]
  - Blood glucose increased [Unknown]
  - Immune-mediated dermatitis [Unknown]
  - Blood thyroid stimulating hormone increased [Unknown]
  - Adverse event [Recovered/Resolved]
  - Weight decreased [Unknown]
  - Fatigue [Unknown]
  - Infusion related reaction [Unknown]
  - Decreased appetite [Unknown]
  - Dyspnoea [Unknown]
  - Product dose omission issue [Unknown]

NARRATIVE: CASE EVENT DATE: 20180730
